FAERS Safety Report 4882126-1 (Version None)
Quarter: 2006Q1

REPORT INFORMATION
  Report Type: 
  Country: None (occurrence: None)
  Receive Date: 20060117
  Receipt Date: 20051004
  Transmission Date: 20060701
  Serious: Yes (Hospitalization, Other)
  Sender: FDA-Public Use
  Company Number: US-MERCK-0510USA03610

PATIENT
  Age: 72 Year
  Sex: Male

DRUGS (7)
  1. VIOXX [Suspect]
     Route: 048
  2. ULTRAM [Concomitant]
     Route: 065
  3. NEURONTIN [Concomitant]
     Route: 065
  4. AXID [Concomitant]
     Route: 065
  5. HYTRIN [Concomitant]
     Route: 065
  6. VASOTEC [Concomitant]
     Route: 065
  7. ASPIRIN [Concomitant]
     Route: 048

REACTIONS (10)
  - BLADDER SPASM [None]
  - CARDIOVASCULAR DISORDER [None]
  - CORONARY ARTERY DISEASE [None]
  - DIZZINESS [None]
  - HYPERTENSION [None]
  - MYOCARDIAL INFARCTION [None]
  - OEDEMA PERIPHERAL [None]
  - OSTEOARTHRITIS [None]
  - PLATELET COUNT DECREASED [None]
  - PROSTATE EXAMINATION ABNORMAL [None]
